FAERS Safety Report 19399437 (Version 1)
Quarter: 2021Q2

REPORT INFORMATION
  Report Type: Spontaneous
  Country: US (occurrence: US)
  Receive Date: 20210610
  Receipt Date: 20210610
  Transmission Date: 20210717
  Serious: No
  Sender: FDA-Public Use
  Company Number: None

PATIENT
  Age: 60 Year
  Sex: Male
  Weight: 98.1 kg

DRUGS (12)
  1. CILOSTAZOL. [Concomitant]
     Active Substance: CILOSTAZOL
  2. GLIMPERIDE [Concomitant]
     Active Substance: GLIMEPIRIDE
  3. LISINOPRIL. [Concomitant]
     Active Substance: LISINOPRIL
  4. HEART MONITOR [Concomitant]
  5. DORZOL/TIMOL [Concomitant]
  6. PIOGLITAZONE. [Concomitant]
     Active Substance: PIOGLITAZONE
  7. TAMSULOSIN [Concomitant]
     Active Substance: TAMSULOSIN
  8. METFORMIN [Concomitant]
     Active Substance: METFORMIN HYDROCHLORIDE
  9. LATANOPROST. [Concomitant]
     Active Substance: LATANOPROST
  10. ATORVASTATIN [Concomitant]
     Active Substance: ATORVASTATIN
  11. HYDROCHLOROTHIAZIDE 25 MG TABLETS [Suspect]
     Active Substance: HYDROCHLOROTHIAZIDE
     Indication: HYPERTENSION
     Dosage: ?          QUANTITY:1 TABLET(S);?
     Route: 048
     Dates: start: 20210331, end: 20210610
  12. ASPIRIN. [Concomitant]
     Active Substance: ASPIRIN

REACTIONS (8)
  - Balance disorder [None]
  - Vision blurred [None]
  - Dizziness [None]
  - Gait inability [None]
  - Tinnitus [None]
  - Glaucoma [None]
  - Feeling abnormal [None]
  - Hypoacusis [None]

NARRATIVE: CASE EVENT DATE: 20210501
